FAERS Safety Report 12342200 (Version 1)
Quarter: 2016Q2

REPORT INFORMATION
  Report Type: Spontaneous
  Country: US (occurrence: US)
  Receive Date: 20160506
  Receipt Date: 20160506
  Transmission Date: 20160815
  Serious: No
  Sender: FDA-Public Use
  Company Number: US-ANACOR-2016ANA00129

PATIENT
  Age: 61 Year
  Sex: Female
  Weight: 69.39 kg

DRUGS (6)
  1. KERYDIN [Suspect]
     Active Substance: TAVABOROLE
     Indication: ONYCHOMYCOSIS
     Dosage: UNK UNK, 1X/DAY
     Route: 061
     Dates: start: 20160319, end: 20160325
  2. ALEVE [Concomitant]
     Active Substance: NAPROXEN SODIUM
     Dosage: 2 DOSAGE UNITS, 1X/DAY
  3. VITAMIN B12 [Concomitant]
     Active Substance: CYANOCOBALAMIN
     Dosage: 1000 MG, UNK
  4. LUMIGAN EYE DROPS [Concomitant]
  5. CALTRATE [Concomitant]
     Active Substance: CALCIUM CARBONATE
  6. MAGNESIUM ZINC [Concomitant]

REACTIONS (1)
  - Application site discomfort [Recovered/Resolved]

NARRATIVE: CASE EVENT DATE: 20160321
